FAERS Safety Report 8179931-5 (Version None)
Quarter: 2012Q1

REPORT INFORMATION
  Report Type: 
  Country: None (occurrence: None)
  Receive Date: 20120302
  Receipt Date: 20120220
  Transmission Date: 20120608
  Serious: Yes (Hospitalization)
  Sender: FDA-Public Use
  Company Number: IT-BRISTOL-MYERS SQUIBB COMPANY-16407157

PATIENT
  Age: 77 Year
  Sex: Male

DRUGS (1)
  1. CARBIDOPA + LEVODOPA [Suspect]
     Indication: PARKINSON'S DISEASE

REACTIONS (4)
  - DYSPHONIA [None]
  - CONFUSIONAL STATE [None]
  - HALLUCINATION, VISUAL [None]
  - RESPIRATORY DISORDER [None]
